FAERS Safety Report 8438169-4 (Version None)
Quarter: 2012Q2

REPORT INFORMATION
  Report Type: 
  Country: None (occurrence: None)
  Receive Date: 20120614
  Receipt Date: 20120609
  Transmission Date: 20120825
  Serious: Yes (Hospitalization)
  Sender: FDA-Public Use
  Company Number: US-ROCHE-782746

PATIENT
  Age: 56 Year
  Sex: Female
  Weight: 60 kg

DRUGS (1)
  1. AVASTIN [Suspect]
     Indication: OVARIAN STROMAL CANCER
     Dosage: OVER 30-90 MINUTES ON DAY 1, CYCLE 21 DAYS DATE OF LAST DOSE: 03 MAY 2011
     Route: 042

REACTIONS (7)
  - CONSTIPATION [None]
  - ABDOMINAL DISTENSION [None]
  - PYREXIA [None]
  - NAUSEA [None]
  - HYPOPHOSPHATAEMIA [None]
  - BACK PAIN [None]
  - ABDOMINAL PAIN [None]
